FAERS Safety Report 25880696 (Version 1)
Quarter: 2025Q4

REPORT INFORMATION
  Report Type: Spontaneous
  Country: EU (occurrence: EU)
  Receive Date: 20251004
  Receipt Date: 20251004
  Transmission Date: 20260118
  Serious: Yes (Life-Threatening)
  Sender: ACCORD
  Company Number: EU-MLMSERVICE-20250915-PI645161-00077-1

PATIENT
  Age: 47 Year
  Sex: Female

DRUGS (2)
  1. FLUOROURACIL [Suspect]
     Active Substance: FLUOROURACIL
     Indication: Colorectal cancer metastatic
  2. CAPECITABINE [Suspect]
     Active Substance: CAPECITABINE
     Indication: Colorectal cancer metastatic

REACTIONS (1)
  - Hypertriglyceridaemia [Unknown]
